FAERS Safety Report 5060082-3 (Version None)
Quarter: 2006Q3

REPORT INFORMATION
  Report Type: 
  Country: None (occurrence: None)
  Receive Date: 20060719
  Receipt Date: 20060705
  Transmission Date: 20061208
  Serious: Yes (Other)
  Sender: FDA-Public Use
  Company Number: 2006JP002087

PATIENT
  Age: 58 Year
  Sex: Male

DRUGS (2)
  1. PROGRAF [Suspect]
     Indication: BONE MARROW TRANSPLANT
     Dosage: 6 MG
  2. METHYLPREDNISOLONE [Concomitant]

REACTIONS (12)
  - ACUTE GRAFT VERSUS HOST DISEASE IN SKIN [None]
  - BLOOD CREATININE INCREASED [None]
  - CEREBRAL HAEMORRHAGE [None]
  - DEHYDRATION [None]
  - DIABETIC COMA [None]
  - DRY EYE [None]
  - FIBRIN D DIMER INCREASED [None]
  - HEADACHE [None]
  - HYPERGLYCAEMIA [None]
  - LEUKOENCEPHALOPATHY [None]
  - PANCREATITIS ACUTE [None]
  - STEM CELL TRANSPLANT [None]
